FAERS Safety Report 5417713-5 (Version None)
Quarter: 2007Q3

REPORT INFORMATION
  Report Type: 
  Country: None (occurrence: None)
  Receive Date: 20070815
  Receipt Date: 20070815
  Transmission Date: 20080115
  Serious: Yes (Hospitalization)
  Sender: FDA-Public Use
  Company Number: None

PATIENT
  Sex: Female
  Weight: 78.4723 kg

DRUGS (7)
  1. DEPAKOTE [Suspect]
     Indication: BIPOLAR I DISORDER
     Dosage: (2000?) PRIOR TO ADMISSION
  2. AVANDIA [Concomitant]
  3. SYNTHROID [Concomitant]
  4. LIPITOR [Concomitant]
  5. SEROQUEL [Concomitant]
  6. KLONOPIN [Concomitant]
  7. GLYBURIDE [Concomitant]

REACTIONS (3)
  - ABDOMINAL PAIN [None]
  - ANTICONVULSANT DRUG LEVEL INCREASED [None]
  - NAUSEA [None]
